FAERS Safety Report 7003371-5 (Version None)
Quarter: 2010Q3

REPORT INFORMATION
  Report Type: 
  Country: None (occurrence: None)
  Receive Date: 20100920
  Receipt Date: 20100824
  Transmission Date: 20110219
  Serious: No
  Sender: FDA-Public Use
  Company Number: US-PFIZER INC-2010106435

PATIENT
  Age: 25 Year
  Sex: Female

DRUGS (2)
  1. LYRICA [Suspect]
     Indication: FIBROMYALGIA
     Dosage: UNK
     Route: 048
     Dates: start: 20100101
  2. CYMBALTA [Suspect]
     Indication: PAIN
     Dosage: 40 MG, DAILY
     Route: 048

REACTIONS (3)
  - DIZZINESS [None]
  - MIGRAINE [None]
  - NAUSEA [None]
